FAERS Safety Report 15986584 (Version 2)
Quarter: 2019Q2

REPORT INFORMATION
  Report Type: Spontaneous
  Country: AT (occurrence: AT)
  Receive Date: 20190220
  Receipt Date: 20190425
  Transmission Date: 20190711
  Serious: Yes (Hospitalization, Other)
  Sender: FDA-Public Use
  Company Number: AT-ASTRAZENECA-2019SE24825

PATIENT
  Age: 67 Year
  Sex: Male

DRUGS (1)
  1. IMFINZI [Suspect]
     Active Substance: DURVALUMAB
     Route: 030

REACTIONS (6)
  - Pneumonia [Recovered/Resolved]
  - Thrombosis [Unknown]
  - Pneumonia staphylococcal [Unknown]
  - Metastases to central nervous system [Unknown]
  - Vertigo [Unknown]
  - Rash [Unknown]

NARRATIVE: CASE EVENT DATE: 20190215
